FAERS Safety Report 7523987-7 (Version None)
Quarter: 2011Q2

REPORT INFORMATION
  Report Type: 
  Country: None (occurrence: None)
  Receive Date: 20110603
  Receipt Date: 20110526
  Transmission Date: 20111010
  Serious: Yes (Other)
  Sender: FDA-Public Use
  Company Number: US-AMGEN-USASP2011027517

PATIENT
  Age: 28 Year
  Sex: Female
  Weight: 77.098 kg

DRUGS (4)
  1. ENBREL [Suspect]
     Indication: PSORIATIC ARTHROPATHY
  2. HUMIRA [Suspect]
     Indication: PSORIATIC ARTHROPATHY
  3. HUMIRA [Suspect]
     Indication: PSORIASIS
     Dosage: UNK
     Dates: start: 20110502, end: 20110502
  4. ENBREL [Suspect]
     Indication: PSORIASIS
     Dosage: UNK

REACTIONS (4)
  - VOMITING [None]
  - RASH GENERALISED [None]
  - THROAT TIGHTNESS [None]
  - DRUG INEFFECTIVE [None]
